FAERS Safety Report 25541448 (Version 3)
Quarter: 2025Q4

REPORT INFORMATION
  Report Type: Report from Study
  Country: CO (occurrence: CO)
  Receive Date: 20250711
  Receipt Date: 20251209
  Transmission Date: 20260118
  Serious: Yes (Other)
  Sender: ALEXION PHARMACEUTICALS
  Company Number: CO-AstraZeneca-CH-00905377A

PATIENT
  Age: 78 Year
  Sex: Male
  Weight: 74 kg

DRUGS (1)
  1. BREZTRI [Suspect]
     Active Substance: BUDESONIDE\FORMOTEROL\GLYCOPYRROLATE
     Indication: Chronic obstructive pulmonary disease
     Dosage: 160 MICROGRAM, Q12H
     Dates: start: 20250603

REACTIONS (8)
  - Prostate cancer [Unknown]
  - Feeling abnormal [Unknown]
  - Abdominal pain [Unknown]
  - Micturition urgency [Unknown]
  - Throat irritation [Unknown]
  - Dry mouth [Unknown]
  - Dysphonia [Unknown]
  - Therapy change [Unknown]

NARRATIVE: CASE EVENT DATE: 20250626
